FAERS Safety Report 6430045-1 (Version None)
Quarter: 2009Q4

REPORT INFORMATION
  Report Type: 
  Country: None (occurrence: None)
  Receive Date: 20091103
  Receipt Date: 20091019
  Transmission Date: 20100525
  Serious: No
  Sender: FDA-Public Use
  Company Number: 02100-JPN-05-0001

PATIENT
  Age: 67 Year
  Sex: Male
  Weight: 55.5 kg

DRUGS (5)
  1. PLETAL [Suspect]
     Indication: CEREBRAL INFARCTION
     Dosage: 81 MG, QD , ORAL
     Route: 048
     Dates: start: 20041203, end: 20041204
  2. LIPITOR (ATORVASTATIN) TABLET [Concomitant]
  3. COVERSYL (PERINDOPRIL) TABLET [Concomitant]
  4. MOBIC (MELOXICAM) CAPSULE [Concomitant]
  5. TAGAMET (CIMETIDINE) TABLET [Concomitant]

REACTIONS (3)
  - ABDOMINAL PAIN [None]
  - DIARRHOEA [None]
  - HAEMORRHAGIC CEREBRAL INFARCTION [None]
